FAERS Safety Report 18794871 (Version 1)
Quarter: 2021Q1

REPORT INFORMATION
  Report Type: Spontaneous
  Country: CN (occurrence: CN)
  Receive Date: 20210127
  Receipt Date: 20210127
  Transmission Date: 20210419
  Serious: Yes (Other)
  Sender: FDA-Public Use
  Company Number: CN-BRISTOL-MYERS SQUIBB COMPANY-BMS-2021-007211

PATIENT
  Age: 66 Year
  Sex: Male

DRUGS (3)
  1. CISPLATIN. [Suspect]
     Active Substance: CISPLATIN
     Indication: NON-SMALL CELL LUNG CANCER
     Dosage: 120 MILLIGRAM EVERY 21 DAYS
     Route: 065
     Dates: start: 201907, end: 201908
  2. PACLITAXEL. [Suspect]
     Active Substance: PACLITAXEL
     Indication: NON-SMALL CELL LUNG CANCER
     Dosage: 210MG EVERY 21 DAYS
     Route: 065
     Dates: start: 201907, end: 201908
  3. NIVOLUMAB [Suspect]
     Active Substance: NIVOLUMAB
     Indication: NON-SMALL CELL LUNG CANCER
     Dosage: 360 MILLIGRAM EVERY 21 DAYS
     Route: 065
     Dates: start: 201907, end: 201908

REACTIONS (2)
  - Myelosuppression [Recovered/Resolved]
  - Off label use [Unknown]
